FAERS Safety Report 7501778-0 (Version None)
Quarter: 2011Q2

REPORT INFORMATION
  Report Type: 
  Country: None (occurrence: None)
  Receive Date: 20110523
  Receipt Date: 20110523
  Transmission Date: 20111010
  Serious: Yes (Hospitalization)
  Sender: FDA-Public Use
  Company Number: None

PATIENT
  Age: 65 Year
  Sex: Female
  Weight: 73.4 kg

DRUGS (13)
  1. HYDROXYUREA [Concomitant]
  2. SENKOTIS [Concomitant]
  3. VIT D [Concomitant]
  4. GABAPENTIN [Concomitant]
  5. COUMADIN [Suspect]
     Indication: THROMBOSIS
     Dosage: PO CHRONIC
     Route: 048
  6. METOPROLOL TARTRATE [Concomitant]
  7. BENADRYL [Concomitant]
  8. ASPIRIN [Suspect]
     Indication: ESSENTIAL THROMBOCYTHAEMIA
     Dosage: 81MG DAILY PO CHRONIC
     Route: 048
  9. NEXIUM [Concomitant]
  10. PERCOCET [Concomitant]
  11. ASPIRIN [Concomitant]
  12. EXFORGE [Concomitant]
  13. ZOFRAN [Concomitant]

REACTIONS (7)
  - PAIN [None]
  - INTERNATIONAL NORMALISED RATIO INCREASED [None]
  - HEADACHE [None]
  - SUBDURAL HAEMATOMA [None]
  - VASCULAR GRAFT OCCLUSION [None]
  - OCCULT BLOOD POSITIVE [None]
  - LEG AMPUTATION [None]
